FAERS Safety Report 23500615 (Version 2)
Quarter: 2024Q1

REPORT INFORMATION
  Report Type: Spontaneous
  Country: JP (occurrence: JP)
  Receive Date: 20240208
  Receipt Date: 20240208
  Transmission Date: 20240409
  Serious: Yes (Other)
  Sender: FDA-Public Use
  Company Number: 22_00019011(0)

PATIENT
  Age: 60 Year
  Sex: Female
  Weight: 79 kg

DRUGS (3)
  1. DEXMEDETOMIDINE HYDROCHLORIDE [Suspect]
     Active Substance: DEXMEDETOMIDINE HYDROCHLORIDE
     Indication: Sedative therapy
     Dosage: 6 MCG/KG/HOUR (6 UG/KG, 1 HR)
     Route: 065
  2. DEXMEDETOMIDINE HYDROCHLORIDE [Suspect]
     Active Substance: DEXMEDETOMIDINE HYDROCHLORIDE
     Dosage: 0.4 MCG/KG/HOUR (0.4 UG/KG, 1 HR)
     Route: 065
  3. LEVOBUPIVACAINE [Suspect]
     Active Substance: LEVOBUPIVACAINE
     Indication: Epidural anaesthesia
     Dosage: 0.125 % (4 ML,1 HR)
     Route: 065

REACTIONS (4)
  - Sinus bradycardia [Recovered/Resolved]
  - Bezold-Jarisch reflex [Recovered/Resolved]
  - Arthralgia [Unknown]
  - Loss of consciousness [Recovered/Resolved]
